FAERS Safety Report 7605995-0 (Version None)
Quarter: 2011Q3

REPORT INFORMATION
  Report Type: 
  Country: None (occurrence: None)
  Receive Date: 20110705
  Receipt Date: 20110620
  Transmission Date: 20111222
  Serious: Yes (Hospitalization, Other)
  Sender: FDA-Public Use
  Company Number: 2011MA007786

PATIENT
  Age: 15 Year
  Sex: Female

DRUGS (1)
  1. FEVERALL [Suspect]
     Indication: OVERDOSE

REACTIONS (3)
  - VOMITING [None]
  - TINNITUS [None]
  - OVERDOSE [None]
